FAERS Safety Report 23942587 (Version 1)
Quarter: 2024Q2

REPORT INFORMATION
  Report Type: Spontaneous
  Country: US (occurrence: US)
  Receive Date: 20240605
  Receipt Date: 20240605
  Transmission Date: 20240715
  Serious: Yes (Other)
  Sender: FDA-Public Use
  Company Number: US-AMGEN-USASP2024105400

PATIENT
  Age: 12 Year
  Sex: Male

DRUGS (3)
  1. BEVACIZUMAB [Suspect]
     Active Substance: BEVACIZUMAB
     Indication: Astrocytoma
     Dosage: UNK
     Route: 065
  2. TEMOZOLOMIDE [Concomitant]
     Active Substance: TEMOZOLOMIDE
     Indication: Astrocytoma
     Dosage: UNK
     Route: 065
  3. OLAPARIB [Concomitant]
     Active Substance: OLAPARIB
     Indication: Astrocytoma
     Dosage: UNK
     Route: 065

REACTIONS (8)
  - Pancytopenia [Unknown]
  - Sepsis [Unknown]
  - Drug effective for unapproved indication [Unknown]
  - Haematuria [Unknown]
  - Nausea [Unknown]
  - Vomiting [Unknown]
  - Fatigue [Unknown]
  - Off label use [Unknown]
